FAERS Safety Report 5349788-6 (Version None)
Quarter: 2007Q2

REPORT INFORMATION
  Report Type: 
  Country: None (occurrence: None)
  Receive Date: 20070607
  Receipt Date: 20070521
  Transmission Date: 20071010
  Serious: Yes (Hospitalization, Other)
  Sender: FDA-Public Use
  Company Number: JP-PFIZER INC-2007021035

PATIENT
  Sex: Male

DRUGS (14)
  1. MIGLITOL [Suspect]
     Indication: DIABETES MELLITUS
     Route: 048
     Dates: start: 20061214, end: 20061217
  2. PREDNISOLONE [Concomitant]
     Indication: NEPHROTIC SYNDROME
     Route: 048
     Dates: start: 20061122, end: 20061217
  3. AMLODIN [Concomitant]
     Indication: HYPERTENSION
     Route: 048
     Dates: start: 20061010, end: 20061217
  4. FUROSEMIDE [Concomitant]
     Indication: NEPHROTIC SYNDROME
     Route: 048
     Dates: start: 20061016, end: 20061217
  5. TICLOPIDINE HYDROCHLORIDE [Concomitant]
     Indication: CEREBRAL INFARCTION
     Route: 048
     Dates: start: 20061016, end: 20061217
  6. TAKEPRON [Concomitant]
     Indication: REFLUX OESOPHAGITIS
     Route: 048
     Dates: start: 20061016, end: 20061217
  7. RISEDRONATE SODIUM [Concomitant]
     Indication: OSTEOPOROSIS
     Route: 048
     Dates: start: 20061016, end: 20061217
  8. ALL OTHER THERAPEUTIC PRODUCTS [Concomitant]
     Indication: CONSTIPATION
     Route: 048
     Dates: start: 20061018, end: 20061217
  9. GLYCERIN [Concomitant]
     Indication: CONSTIPATION
     Dates: start: 20061022, end: 20061219
  10. SPIRONOLACTONE [Concomitant]
     Indication: NEPHROTIC SYNDROME
     Route: 048
     Dates: start: 20061115, end: 20061121
  11. LECICARBON [Concomitant]
     Indication: CONSTIPATION
     Route: 054
     Dates: start: 20061207
  12. MAGNESIUM OXIDE [Concomitant]
     Indication: CONSTIPATION
     Route: 048
     Dates: start: 20061212, end: 20061217
  13. ALL OTHER THERAPEUTIC PRODUCTS [Concomitant]
     Indication: NEPHROTIC SYNDROME
     Route: 042
     Dates: start: 20061218, end: 20061218
  14. LASIX [Concomitant]
     Indication: NEPHROTIC SYNDROME
     Route: 042
     Dates: start: 20061218, end: 20061218

REACTIONS (4)
  - DISSEMINATED INTRAVASCULAR COAGULATION [None]
  - ILEUS PARALYTIC [None]
  - INTESTINAL OBSTRUCTION [None]
  - SEPTIC SHOCK [None]
